FAERS Safety Report 13325419 (Version 1)
Quarter: 2017Q1

REPORT INFORMATION
  Report Type: Spontaneous
  Country: US (occurrence: US)
  Receive Date: 20170310
  Receipt Date: 20170310
  Transmission Date: 20170428
  Serious: No
  Sender: FDA-Public Use
  Company Number: US-PERRIGO-16US019326

PATIENT
  Age: 72 Year
  Sex: Male
  Weight: 68.27 kg

DRUGS (9)
  1. LEVOTHYROXINE. [Concomitant]
     Active Substance: LEVOTHYROXINE
     Indication: GOITRE
     Dosage: 50 MCG
     Route: 065
  2. ULORIC [Concomitant]
     Active Substance: FEBUXOSTAT
     Indication: GOITRE
     Dosage: UNK
     Route: 065
  3. TESTOSTERONE CYPIONATE. [Suspect]
     Active Substance: TESTOSTERONE CYPIONATE
     Indication: BLOOD TESTOSTERONE DECREASED
     Dosage: UNKNOWN, EVERY TWO WEEKS
     Route: 030
     Dates: start: 201607
  4. VITAMIN D3 [Concomitant]
     Active Substance: CHOLECALCIFEROL
     Indication: VITAMIN D DEFICIENCY
     Dosage: UNK
     Route: 065
  5. SIMVASTATIN. [Concomitant]
     Active Substance: SIMVASTATIN
     Indication: BLOOD CHOLESTEROL INCREASED
     Dosage: 30 MG
     Route: 065
  6. VIAGRA [Concomitant]
     Active Substance: SILDENAFIL CITRATE
     Indication: LIBIDO DISORDER
     Dosage: UNK
     Route: 065
     Dates: start: 201607
  7. LISINOPRIL. [Concomitant]
     Active Substance: LISINOPRIL
     Indication: HYPERTENSION
     Dosage: 20 MG
     Route: 065
  8. ULORIC [Concomitant]
     Active Substance: FEBUXOSTAT
     Indication: ARTHRITIS
  9. GLIMEPIRIDE. [Concomitant]
     Active Substance: GLIMEPIRIDE
     Indication: TYPE 2 DIABETES MELLITUS
     Dosage: 2 MG
     Route: 065

REACTIONS (1)
  - Drug ineffective [Unknown]

NARRATIVE: CASE EVENT DATE: 201607
